FAERS Safety Report 13396935 (Version 2)
Quarter: 2017Q2

REPORT INFORMATION
  Report Type: Spontaneous
  Country: DE (occurrence: DE)
  Receive Date: 20170403
  Receipt Date: 20170412
  Transmission Date: 20170830
  Serious: Yes (Other)
  Sender: FDA-Public Use
  Company Number: DE-AMGEN-DEUSP2017049134

PATIENT
  Age: 9 Year
  Sex: Male

DRUGS (1)
  1. PROLIA [Suspect]
     Active Substance: DENOSUMAB
     Indication: OSTEOCHONDROSIS
     Dosage: 60 MG, UNK
     Route: 065

REACTIONS (2)
  - Bone development abnormal [Recovered/Resolved]
  - Off label use [Unknown]
